FAERS Safety Report 8880457 (Version 1)
Quarter: 2012Q4

REPORT INFORMATION
  Report Type: 
  Country: BR (occurrence: BR)
  Receive Date: 20121101
  Receipt Date: 20121101
  Transmission Date: 20130627
  Serious: Yes (Other)
  Sender: FDA-Public Use
  Company Number: BR-PFIZER INC-2012266781

PATIENT
  Age: 79 Year
  Sex: Female

DRUGS (2)
  1. XALATAN [Suspect]
     Indication: GLAUCOMA
     Dosage: 3 ug (one drop in each eye), 1x/day
     Route: 047
     Dates: start: 20111023
  2. DICLOFENAC [Concomitant]
     Indication: CONTUSION

REACTIONS (6)
  - Rheumatic disorder [Unknown]
  - Musculoskeletal stiffness [Unknown]
  - Paraesthesia [Unknown]
  - Pain in extremity [Unknown]
  - Oedema peripheral [Unknown]
  - Pain in extremity [Unknown]
